FAERS Safety Report 25958666 (Version 4)
Quarter: 2025Q4

REPORT INFORMATION
  Report Type: Spontaneous
  Country: CL (occurrence: CL)
  Receive Date: 20251024
  Receipt Date: 20251217
  Transmission Date: 20260118
  Serious: Yes (Life-Threatening, Hospitalization, Other)
  Sender: BIOMARIN
  Company Number: CL-BIOMARINAP-CL-2025-169631

PATIENT
  Age: 4 Year
  Sex: Male
  Weight: 23 kg

DRUGS (2)
  1. BRINEURA [Suspect]
     Active Substance: CERLIPONASE ALFA
     Indication: Neuronal ceroid lipofuscinosis
     Dosage: 300 MILLIGRAM, QOW
     Dates: start: 20251010
  2. LEVETIRACETAM [Concomitant]
     Active Substance: LEVETIRACETAM
     Indication: Atonic seizures
     Dosage: 300 MILLIGRAM, BID
     Dates: start: 20241120

REACTIONS (10)
  - Febrile convulsion [Recovered/Resolved]
  - Partial seizures [Recovered/Resolved]
  - Gaze palsy [Recovered/Resolved]
  - Depressed level of consciousness [Recovered/Resolved]
  - Clonus [Recovered/Resolved]
  - Pyrexia [Recovered/Resolved]
  - Pallor [Recovered/Resolved]
  - Salivary hypersecretion [Recovered/Resolved]
  - Rhinorrhoea [Recovered/Resolved]
  - Influenza [Unknown]

NARRATIVE: CASE EVENT DATE: 20251012
